FAERS Safety Report 11079255 (Version 1)
Quarter: 2015Q2

REPORT INFORMATION
  Report Type: Spontaneous
  Country: AT (occurrence: None)
  Receive Date: 20150428
  Receipt Date: 20150428
  Transmission Date: 20150821
  Serious: Yes (Hospitalization)
  Sender: FDA-Public Use
  Company Number: 2014SA174674

PATIENT
  Sex: Male

DRUGS (10)
  1. IRINOTECAN [Concomitant]
     Active Substance: IRINOTECAN
  2. ADALAT [Concomitant]
     Active Substance: NIFEDIPINE
  3. FLUOROURACIL. [Concomitant]
     Active Substance: FLUOROURACIL
  4. FOLINIC ACID [Concomitant]
     Active Substance: LEUCOVORIN
  5. XELODA [Concomitant]
     Active Substance: CAPECITABINE
  6. ZALTRAP [Suspect]
     Active Substance: ZIV-AFLIBERCEPT
     Indication: RECTAL ADENOCARCINOMA
     Dosage: EVERY CYCLE??(NOT OTHERWISE SPECIFIED)
     Route: 042
     Dates: start: 20131029
  7. ACEMIN [Concomitant]
     Active Substance: LISINOPRIL
  8. OXALIPLATIN. [Concomitant]
     Active Substance: OXALIPLATIN
  9. ACECOMB [Concomitant]
     Active Substance: HYDROCHLOROTHIAZIDE\LISINOPRIL
  10. AVASTIN [Concomitant]
     Active Substance: BEVACIZUMAB

REACTIONS (13)
  - Hypertension [None]
  - Rash [None]
  - Fatigue [None]
  - Herpes zoster [None]
  - Trigger finger [None]
  - Infection [None]
  - Arthralgia [None]
  - Oedema peripheral [None]
  - Pancytopenia [None]
  - Weight increased [None]
  - Diarrhoea [None]
  - Stasis dermatitis [None]
  - Temperature intolerance [None]

NARRATIVE: CASE EVENT DATE: 20141221
